FAERS Safety Report 23687729 (Version 2)
Quarter: 2024Q4

REPORT INFORMATION
  Report Type: Spontaneous
  Country: CN (occurrence: CN)
  Receive Date: 20240329
  Receipt Date: 20241223
  Transmission Date: 20250114
  Serious: Yes (Other)
  Sender: PFIZER
  Company Number: CN-PFIZER INC-PV202400041494

PATIENT
  Age: 28 Year
  Sex: Female
  Weight: 62.5 kg

DRUGS (3)
  1. HEMABATE [Suspect]
     Active Substance: CARBOPROST TROMETHAMINE
     Indication: Uterine hypotonus
     Dosage: 250 UG, 1X/DAY
     Route: 030
     Dates: start: 20240326, end: 20240326
  2. OXYTOCIN [Suspect]
     Active Substance: OXYTOCIN
     Indication: Uterine hypotonus
     Dosage: 20 IU, 1X/DAY
     Route: 041
     Dates: start: 20240326, end: 20240326
  3. DEXTROSE\SODIUM CHLORIDE [Concomitant]
     Active Substance: DEXTROSE\SODIUM CHLORIDE
     Indication: Vehicle solution use
     Dosage: 500 ML, 1X/DAY
     Route: 041
     Dates: start: 20240326, end: 20240326

REACTIONS (5)
  - Tachycardia [Recovered/Resolved]
  - Nausea [Recovered/Resolved]
  - Vomiting [Recovered/Resolved]
  - Palpitations [Recovered/Resolved]
  - Chest discomfort [Recovered/Resolved]

NARRATIVE: CASE EVENT DATE: 20240326
